FAERS Safety Report 6800563-2 (Version None)
Quarter: 2010Q2

REPORT INFORMATION
  Report Type: 
  Country: None (occurrence: None)
  Receive Date: 20100625
  Receipt Date: 20100625
  Transmission Date: 20101027
  Serious: Yes (Disabling)
  Sender: FDA-Public Use
  Company Number: None

PATIENT
  Sex: Male
  Weight: 50.8029 kg

DRUGS (1)
  1. DEPAKOTE [Suspect]
     Indication: CONVULSION
     Dosage: 125MG 2AM 3HS PO
     Route: 048
     Dates: start: 20070101, end: 20080101

REACTIONS (1)
  - TREMOR [None]
